FAERS Safety Report 24754959 (Version 1)
Quarter: 2024Q4

REPORT INFORMATION
  Report Type: Spontaneous
  Country: US (occurrence: US)
  Receive Date: 20241219
  Receipt Date: 20241219
  Transmission Date: 20250115
  Serious: Yes (Hospitalization, Other)
  Sender: AMGEN
  Company Number: US-AMGEN-USASP2024245645

PATIENT
  Age: 75 Year
  Sex: Male

DRUGS (2)
  1. PREDNISONE [Suspect]
     Active Substance: PREDNISONE
     Indication: Hyperthyroidism
     Dosage: 10 MILLIGRAM, QD FOR 14 DAYS
     Route: 065
  2. METHIMAZOLE [Concomitant]
     Active Substance: METHIMAZOLE
     Dosage: 5 MILLIGRAM, QD FOR 14 DAYS
     Route: 065

REACTIONS (3)
  - Coronary artery disease [Unknown]
  - Thyroxine free increased [Unknown]
  - Off label use [Unknown]
